FAERS Safety Report 8394986-0 (Version None)
Quarter: 2012Q2

REPORT INFORMATION
  Report Type: 
  Country: None (occurrence: None)
  Receive Date: 20120530
  Receipt Date: 20120330
  Transmission Date: 20120825
  Serious: Yes (Hospitalization)
  Sender: FDA-Public Use
  Company Number: US-GLAXOSMITHKLINE-A0972428A

PATIENT
  Age: 35 Year
  Sex: Female

DRUGS (2)
  1. REVATIO [Concomitant]
     Dosage: 20MG THREE TIMES PER DAY
     Route: 048
  2. FLOLAN [Suspect]
     Indication: COR PULMONALE CHRONIC
     Dosage: 21NGKM SEE DOSAGE TEXT
     Route: 042
     Dates: start: 20110525

REACTIONS (1)
  - PLATELET COUNT DECREASED [None]
